FAERS Safety Report 12079973 (Version 1)
Quarter: 2016Q1

REPORT INFORMATION
  Report Type: Spontaneous
  Country: US (occurrence: None)
  Receive Date: 20160212
  Receipt Date: 20160212
  Transmission Date: 20160526
  Serious: No
  Sender: FDA-Public Use
  Company Number: None

PATIENT
  Age: 53 Year
  Sex: Female

DRUGS (1)
  1. AMPYRA [Suspect]
     Active Substance: DALFAMPRIDINE
     Indication: MULTIPLE SCLEROSIS
     Route: 048
     Dates: start: 20160120

REACTIONS (5)
  - Blood urine present [None]
  - Back pain [None]
  - Urine odour abnormal [None]
  - Micturition urgency [None]
  - Burning sensation [None]

NARRATIVE: CASE EVENT DATE: 20160125
